FAERS Safety Report 5392087-7 (Version None)
Quarter: 2007Q3

REPORT INFORMATION
  Report Type: 
  Country: None (occurrence: None)
  Receive Date: 20070718
  Receipt Date: 20070718
  Transmission Date: 20080115
  Serious: Yes (Hospitalization, Other)
  Sender: FDA-Public Use
  Company Number: None

PATIENT
  Age: 20 Year
  Sex: Female
  Weight: 95.9358 kg

DRUGS (1)
  1. MEDROXYPROGESTERONE [Suspect]
     Indication: MENSTRUATION IRREGULAR
     Dosage: 10 MG 5 DAYS PO
     Route: 048
     Dates: start: 20070501, end: 20070613

REACTIONS (32)
  - ACNE [None]
  - ALOPECIA [None]
  - ARTHRALGIA [None]
  - BLINDNESS [None]
  - BREAST TENDERNESS [None]
  - DEPRESSION [None]
  - DIZZINESS [None]
  - ERYTHEMA [None]
  - FEELING HOT [None]
  - HEART RATE INCREASED [None]
  - HIRSUTISM [None]
  - INITIAL INSOMNIA [None]
  - JOINT SWELLING [None]
  - MENORRHAGIA [None]
  - MENSTRUAL DISORDER [None]
  - METRORRHAGIA [None]
  - MIDDLE INSOMNIA [None]
  - MOOD SWINGS [None]
  - OEDEMA PERIPHERAL [None]
  - PAIN [None]
  - PAIN IN EXTREMITY [None]
  - PALPITATIONS [None]
  - PRURITUS [None]
  - RASH [None]
  - SOMNOLENCE [None]
  - STOMACH DISCOMFORT [None]
  - SUICIDAL IDEATION [None]
  - SWELLING [None]
  - URTICARIA [None]
  - VISION BLURRED [None]
  - VISUAL DISTURBANCE [None]
  - WEIGHT FLUCTUATION [None]
